FAERS Safety Report 6869415-6 (Version None)
Quarter: 2010Q3

REPORT INFORMATION
  Report Type: 
  Country: None (occurrence: None)
  Receive Date: 20100722
  Receipt Date: 20080731
  Transmission Date: 20110219
  Serious: No
  Sender: FDA-Public Use
  Company Number: US-PFIZER INC-2008065165

PATIENT
  Sex: Female
  Weight: 47.63 kg

DRUGS (2)
  1. CHANTIX [Suspect]
     Indication: SMOKING CESSATION THERAPY
     Dates: start: 20080301, end: 20080701
  2. ALBUTEROL [Concomitant]
     Indication: ASTHMA

REACTIONS (2)
  - NAUSEA [None]
  - NIGHTMARE [None]
